FAERS Safety Report 15784477 (Version 2)
Quarter: 2019Q1

REPORT INFORMATION
  Report Type: Spontaneous
  Country: HU (occurrence: HU)
  Receive Date: 20190103
  Receipt Date: 20190325
  Transmission Date: 20190417
  Serious: Yes (Hospitalization, Other)
  Sender: FDA-Public Use
  Company Number: HU-ACCORD-068416

PATIENT
  Age: 11 Year
  Sex: Female

DRUGS (6)
  1. NIVOLUMAB [Concomitant]
     Active Substance: NIVOLUMAB
     Indication: CHRONIC MYELOID LEUKAEMIA
  2. METHOTREXATE. [Suspect]
     Active Substance: METHOTREXATE
     Indication: CHRONIC MYELOID LEUKAEMIA
     Dosage: TOTAL OF FOUR COURSES OF BOTH HD-MTX (5 G/M2) EVERY 4 WEEKS
  3. PREDNISOLONE. [Suspect]
     Active Substance: PREDNISOLONE
     Indication: POST TRANSPLANT LYMPHOPROLIFERATIVE DISORDER
     Dosage: EVERY 2 WEEKS IN AN ALTERNATING FASHION
     Route: 037
  4. CYTARABINE/CYTARABINE HYDROCHLORIDE/CYTARABINE OCFOSFATE [Suspect]
     Active Substance: CYTARABINE
     Indication: CHRONIC MYELOID LEUKAEMIA
  5. RITUXIMAB. [Concomitant]
     Active Substance: RITUXIMAB
     Indication: CHRONIC MYELOID LEUKAEMIA
     Dosage: ALSO RECEIVED 25 MG
  6. FOLINIC ACID [Suspect]
     Active Substance: LEUCOVORIN
     Indication: POST TRANSPLANT LYMPHOPROLIFERATIVE DISORDER
     Dosage: WITH 4-WEEK INTERVALS

REACTIONS (5)
  - Escherichia bacteraemia [Recovered/Resolved]
  - Off label use [Unknown]
  - Adenovirus infection [Recovered/Resolved]
  - Toxicity to various agents [Unknown]
  - Sepsis [Unknown]
